FAERS Safety Report 4709624-5 (Version None)
Quarter: 2005Q3

REPORT INFORMATION
  Report Type: 
  Country: None (occurrence: None)
  Receive Date: 20050707
  Receipt Date: 20050617
  Transmission Date: 20060218
  Serious: Yes (Other)
  Sender: FDA-Public Use
  Company Number: US_0503114586

PATIENT
  Age: 79 Year
  Sex: Female

DRUGS (13)
  1. FORTEO [Suspect]
     Indication: OSTEOPOROSIS
     Dosage: 20 UG DAY
     Dates: start: 20050209
  2. DARVOCET-N 100 [Concomitant]
  3. EXCEDRIN (MIGRAINE) [Concomitant]
  4. IBUPROFEN [Concomitant]
  5. METAMUCIL (PLANTAGO OVATA) [Concomitant]
  6. EQUATE (IBUPROFEN) [Concomitant]
  7. TAMOXIFEN CITRATE [Concomitant]
  8. SYNTHROID [Concomitant]
  9. XANAX [Concomitant]
  10. ADCO-SUFEDRIN (PSEUDOEPHEDRINE HYDROCHLORIDE) [Concomitant]
  11. BECONASE AQ (BECLOMETASONE DIPROPIONATE) [Concomitant]
  12. POTASSIUM CHLORIDE [Concomitant]
  13. CALCIUM GLUCONATE [Concomitant]

REACTIONS (16)
  - ABDOMINAL DISTENSION [None]
  - ABDOMINAL PAIN UPPER [None]
  - ARTHROPATHY [None]
  - COMPUTERISED TOMOGRAM ABNORMAL [None]
  - CONSTIPATION [None]
  - DRUG EFFECT DECREASED [None]
  - DRUG INEFFECTIVE [None]
  - DYSPEPSIA [None]
  - FEELING ABNORMAL [None]
  - FLATULENCE [None]
  - HEADACHE [None]
  - MUSCLE SPASMS [None]
  - PHARMACEUTICAL PRODUCT COMPLAINT [None]
  - URINE ABNORMALITY [None]
  - URINE ODOUR ABNORMAL [None]
  - WEIGHT DECREASED [None]
